FAERS Safety Report 25021137 (Version 1)
Quarter: 2025Q1

REPORT INFORMATION
  Report Type: Spontaneous
  Country: CN (occurrence: CN)
  Receive Date: 20250228
  Receipt Date: 20250228
  Transmission Date: 20250409
  Serious: Yes (Hospitalization)
  Sender: BEIGENE
  Company Number: CN-BEIGENE-BGN-2025-002914

PATIENT
  Age: 53 Year
  Weight: 42 kg

DRUGS (8)
  1. TISLELIZUMAB [Suspect]
     Active Substance: TISLELIZUMAB
     Indication: Oesophageal carcinoma
  2. TISLELIZUMAB [Suspect]
     Active Substance: TISLELIZUMAB
     Route: 041
  3. TISLELIZUMAB [Suspect]
     Active Substance: TISLELIZUMAB
     Route: 041
  4. TISLELIZUMAB [Suspect]
     Active Substance: TISLELIZUMAB
  5. DOCETAXEL [Suspect]
     Active Substance: DOCETAXEL
     Indication: Oesophageal carcinoma
     Route: 041
  6. DOCETAXEL [Suspect]
     Active Substance: DOCETAXEL
  7. CARBOPLATIN [Suspect]
     Active Substance: CARBOPLATIN
     Indication: Oesophageal carcinoma
     Route: 041
  8. CARBOPLATIN [Suspect]
     Active Substance: CARBOPLATIN

REACTIONS (3)
  - Agranulocytosis [Recovered/Resolved]
  - Myelosuppression [Recovered/Resolved]
  - Diarrhoea [Recovered/Resolved]
